FAERS Safety Report 5482756-2 (Version None)
Quarter: 2007Q4

REPORT INFORMATION
  Report Type: 
  Country: None (occurrence: None)
  Receive Date: 20071011
  Receipt Date: 20070928
  Transmission Date: 20080405
  Serious: Yes (Other)
  Sender: FDA-Public Use
  Company Number: US-PFIZER INC-2007082793

PATIENT
  Sex: Female
  Weight: 72.727 kg

DRUGS (2)
  1. CHANTIX [Suspect]
     Indication: SMOKING CESSATION THERAPY
     Dates: start: 20070801, end: 20070924
  2. NAPROSYN [Concomitant]

REACTIONS (3)
  - GLOSSODYNIA [None]
  - TONGUE OEDEMA [None]
  - UNEVALUABLE EVENT [None]
